FAERS Safety Report 24831976 (Version 1)
Quarter: 2025Q1

REPORT INFORMATION
  Report Type: Spontaneous
  Country: US (occurrence: US)
  Receive Date: 20250110
  Receipt Date: 20250110
  Transmission Date: 20250408
  Serious: Yes (Other)
  Sender: ABBVIE
  Company Number: US-ABBVIE-6076482

PATIENT
  Sex: Male

DRUGS (1)
  1. LINACLOTIDE [Suspect]
     Active Substance: LINACLOTIDE
     Indication: Product used for unknown indication
     Route: 065

REACTIONS (2)
  - Gastrointestinal disorder [Unknown]
  - Gastrointestinal disorder [Unknown]
